FAERS Safety Report 4969139-6 (Version None)
Quarter: 2006Q2

REPORT INFORMATION
  Report Type: 
  Country: None (occurrence: None)
  Receive Date: 20060411
  Receipt Date: 20050511
  Transmission Date: 20061013
  Serious: No
  Sender: FDA-Public Use
  Company Number: US-BRISTOL-MYERS SQUIBB COMPANY-12963294

PATIENT
  Age: 74 Year
  Sex: Male
  Weight: 69 kg

DRUGS (8)
  1. CARBOPLATIN [Suspect]
     Indication: LUNG NEOPLASM MALIGNANT
     Route: 042
     Dates: start: 20050505, end: 20050505
  2. ANZEMET [Concomitant]
     Indication: PREMEDICATION
     Dates: start: 20050505, end: 20050505
  3. DECADRON [Concomitant]
     Indication: PREMEDICATION
     Dates: start: 20050505, end: 20050505
  4. BENADRYL [Concomitant]
     Indication: PREMEDICATION
     Dates: start: 20050505, end: 20050505
  5. PEPCID [Concomitant]
     Indication: PREMEDICATION
     Dates: start: 20050505, end: 20050505
  6. DIGITEK [Concomitant]
  7. PRAVACHOL [Concomitant]
  8. HYDROCHLOROTHIAZIDE [Concomitant]

REACTIONS (3)
  - INJECTION SITE ERYTHEMA [None]
  - INJECTION SITE PRURITUS [None]
  - INJECTION SITE URTICARIA [None]
